FAERS Safety Report 15200061 (Version 1)
Quarter: 2018Q3

REPORT INFORMATION
  Report Type: Spontaneous
  Country: FR (occurrence: FR)
  Receive Date: 20180725
  Receipt Date: 20180725
  Transmission Date: 20181010
  Serious: Yes (Hospitalization)
  Sender: FDA-Public Use
  Company Number: FR-TEVA-2018-FR-929942

PATIENT
  Age: 76 Year
  Sex: Male
  Weight: 101 kg

DRUGS (15)
  1. ADENURIC [Concomitant]
     Active Substance: FEBUXOSTAT
     Route: 065
  2. AMLOR [Concomitant]
     Active Substance: AMLODIPINE BESYLATE
     Route: 065
  3. DEDROGYL [Concomitant]
     Active Substance: CALCIFEDIOL
     Route: 065
  4. PREVISCAN 20 MG, COMPRIM? S?CABLE [Suspect]
     Active Substance: FLUINDIONE
     Indication: THROMBOSIS PROPHYLAXIS
     Route: 048
     Dates: end: 20180130
  5. LANZOR [Concomitant]
     Active Substance: LANSOPRAZOLE
     Route: 065
  6. SEREVENT DISKUS [Concomitant]
     Active Substance: SALMETEROL XINAFOATE
     Route: 065
  7. CARBOPLATIN. [Suspect]
     Active Substance: CARBOPLATIN
     Indication: NEOPLASM MALIGNANT
     Route: 042
     Dates: start: 20180131, end: 20180131
  8. SPIRIVA [Concomitant]
     Active Substance: TIOTROPIUM BROMIDE MONOHYDRATE
     Route: 065
  9. UROREC [Concomitant]
     Active Substance: SILODOSIN
     Route: 065
  10. VENTOLINE [Concomitant]
     Active Substance: ALBUTEROL
     Route: 065
  11. IKOREL [Concomitant]
     Active Substance: NICORANDIL
     Route: 065
  12. PACLITAXEL. [Suspect]
     Active Substance: PACLITAXEL
     Indication: NEOPLASM MALIGNANT
     Route: 042
     Dates: start: 20180131, end: 20180131
  13. CALCIPARINE [Suspect]
     Active Substance: HEPARIN CALCIUM
     Indication: THROMBOSIS PROPHYLAXIS
     Dosage: 50000 IU (INTERNATIONAL UNIT) DAILY;
     Route: 058
     Dates: start: 20180130, end: 20180202
  14. CRESTOR [Concomitant]
     Active Substance: ROSUVASTATIN CALCIUM
     Route: 065
  15. SOTALEX [Concomitant]
     Active Substance: SOTALOL
     Route: 065

REACTIONS (3)
  - Haemoptysis [Recovered/Resolved]
  - Haemoglobin decreased [None]
  - Prothrombin time shortened [None]

NARRATIVE: CASE EVENT DATE: 20180201
